FAERS Safety Report 10584684 (Version 1)
Quarter: 2014Q4

REPORT INFORMATION
  Report Type: Spontaneous
  Country: US (occurrence: None)
  Receive Date: 20141113
  Receipt Date: 20141113
  Transmission Date: 20150529
  Serious: Yes (Other)
  Sender: FDA-Public Use
  Company Number: None

PATIENT
  Age: 20 Year
  Sex: Female

DRUGS (1)
  1. REMICADE [Suspect]
     Active Substance: INFLIXIMAB
     Indication: CROHN^S DISEASE
     Dosage: Q8WEEKS
     Route: 042
     Dates: start: 20110728, end: 201408

REACTIONS (2)
  - Urinary tract infection [None]
  - Psoriasis [None]

NARRATIVE: CASE EVENT DATE: 201408
